FAERS Safety Report 24314953 (Version 4)
Quarter: 2025Q3

REPORT INFORMATION
  Report Type: Spontaneous
  Country: EU (occurrence: EU)
  Receive Date: 20240913
  Receipt Date: 20250806
  Transmission Date: 20251021
  Serious: Yes (Other)
  Sender: AUROBINDO
  Company Number: EU-AUROBINDO-AUR-APL-2024-044562

PATIENT
  Age: 29 Year
  Sex: Female

DRUGS (7)
  1. LIDOCAINE [Suspect]
     Active Substance: LIDOCAINE
     Indication: Caesarean section
     Route: 042
  2. LIDOCAINE [Suspect]
     Active Substance: LIDOCAINE
     Indication: Epidural analgesia
  3. ROPIVACAINE [Suspect]
     Active Substance: ROPIVACAINE
     Indication: Analgesic therapy
     Route: 065
  4. ROPIVACAINE [Suspect]
     Active Substance: ROPIVACAINE
     Indication: Caesarean section
     Route: 042
  5. ROPIVACAINE [Suspect]
     Active Substance: ROPIVACAINE
     Indication: Epidural analgesia
     Dosage: 7 MILLILITER, EVERY HOUR (PERFUSION OF 0.15% ROPIVACAINE AT 7 ML/H)
     Route: 042
  6. SUFENTANIL [Suspect]
     Active Substance: SUFENTANIL
     Indication: Epidural analgesia
     Route: 042
  7. SUFENTANIL [Suspect]
     Active Substance: SUFENTANIL
     Indication: Caesarean section

REACTIONS (6)
  - Horner^s syndrome [Recovered/Resolved]
  - Exposure during pregnancy [Unknown]
  - Maternal exposure during delivery [Unknown]
  - Vasodilatation [Recovered/Resolved]
  - Maternal exposure during pregnancy [Unknown]
  - Sympathectomy [Recovered/Resolved]
